FAERS Safety Report 4380736-1 (Version None)
Quarter: 2004Q2

REPORT INFORMATION
  Report Type: 
  Country: None (occurrence: None)
  Receive Date: 20040616
  Receipt Date: 20040604
  Transmission Date: 20050107
  Serious: Yes (Death)
  Sender: FDA-Public Use
  Company Number: S04-FRA-02439-01

PATIENT
  Age: 49 Year
  Sex: Male

DRUGS (10)
  1. CITALOPRAM HYDROBROMIDE [Suspect]
     Dates: end: 20030903
  2. TERCIAN (CYAMEMAZINE) [Suspect]
     Dates: end: 20030903
  3. THERALENE (ALIMEMAZINE TARTRATE) [Suspect]
     Dates: end: 20030903
  4. BROMAZEPAM [Suspect]
     Dates: end: 20030903
  5. PROZAC [Suspect]
     Dates: end: 20030903
  6. ASPIRIN [Concomitant]
  7. CORDARONE [Concomitant]
  8. RAMIPRIL [Concomitant]
  9. PIPRAM (PIPEMIDIC ACID) [Concomitant]
  10. OFLOXACIN [Concomitant]

REACTIONS (13)
  - ANGIOPATHY [None]
  - DRUG INTERACTION POTENTIATION [None]
  - DRUG SCREEN POSITIVE [None]
  - DRUG TOXICITY [None]
  - GASTRODUODENITIS [None]
  - HEPATIC CONGESTION [None]
  - INTENTIONAL OVERDOSE [None]
  - LUNG DISORDER [None]
  - LYMPHATIC DISORDER [None]
  - OESOPHAGEAL ULCER [None]
  - PETECHIAE [None]
  - PULMONARY OEDEMA [None]
  - SPLEEN CONGESTION [None]
